FAERS Safety Report 6762036-5 (Version None)
Quarter: 2010Q2

REPORT INFORMATION
  Report Type: 
  Country: None (occurrence: None)
  Receive Date: 20100609
  Receipt Date: 20100604
  Transmission Date: 20101027
  Serious: Yes (Death)
  Sender: FDA-Public Use
  Company Number: JP-BRISTOL-MYERS SQUIBB COMPANY-15098858

PATIENT
  Age: 63 Year
  Sex: Male
  Weight: 58 kg

DRUGS (8)
  1. ERBITUX [Suspect]
     Indication: RECTAL CANCER
     Dosage: 400MG/M2 1 IN 1 WEEK. FROM 27-FEB-2009 FIRST INF:19FEB09 LAST INF(40TH):11DEC09
     Route: 042
     Dates: start: 20090219
  2. IRINOTECAN [Concomitant]
     Indication: RECTAL CANCER
     Route: 042
     Dates: start: 20090219, end: 20091030
  3. FLUOROURACIL [Concomitant]
     Indication: RECTAL CANCER
     Dosage: ALSO 2900MG INTRAVENOUS DRIP
     Route: 040
     Dates: start: 20090219, end: 20091030
  4. LEUCOVORIN CALCIUM [Concomitant]
     Indication: RECTAL CANCER
     Route: 042
     Dates: start: 20090219, end: 20091030
  5. RESTAMIN [Concomitant]
     Indication: PREMEDICATION
     Dosage: FORM:TAB 5DF=TAB
     Route: 048
     Dates: start: 20090219, end: 20091215
  6. DECADRON [Concomitant]
     Indication: PREMEDICATION
     Route: 042
  7. KYTRIL [Concomitant]
     Indication: ANTIEMETIC SUPPORTIVE CARE
     Route: 042
  8. ANPLAG [Concomitant]
     Indication: DEEP VEIN THROMBOSIS
     Route: 048
     Dates: start: 20081028, end: 20091225

REACTIONS (1)
  - PULMONARY EMBOLISM [None]
